FAERS Safety Report 5682504-7 (Version None)
Quarter: 2008Q1

REPORT INFORMATION
  Report Type: 
  Country: None (occurrence: None)
  Receive Date: 20080326
  Receipt Date: 20080326
  Transmission Date: 20080703
  Serious: Yes (Hospitalization)
  Sender: FDA-Public Use
  Company Number: None

PATIENT
  Sex: Female
  Weight: 60.1 kg

DRUGS (2)
  1. CLOFARABINE  INVESTIGATIONAL SUPPLY [Suspect]
     Indication: LYMPHOMA
  2. IBUPROFEN TABLETS [Suspect]
     Dosage: 800 MG  2-3 TIMES/DAY  PO
     Route: 048

REACTIONS (8)
  - ANAEMIA [None]
  - ANOREXIA [None]
  - CONDITION AGGRAVATED [None]
  - DEHYDRATION [None]
  - NAUSEA [None]
  - NEPHROLITHIASIS [None]
  - RENAL FAILURE ACUTE [None]
  - RENAL INJURY [None]
